FAERS Safety Report 10475865 (Version 2)
Quarter: 2014Q4

REPORT INFORMATION
  Report Type: Spontaneous
  Country: US (occurrence: US)
  Receive Date: 20140925
  Receipt Date: 20141028
  Transmission Date: 20150528
  Serious: No
  Sender: FDA-Public Use
  Company Number: US-GLAXOSMITHKLINE-A1082690A

PATIENT
  Sex: Female

DRUGS (2)
  1. COREG [Suspect]
     Active Substance: CARVEDILOL
     Indication: CORONARY ARTERIAL STENT INSERTION
     Dosage: 12.5 MG DAILY25 MG TWICE DAILY12.5 MG IN THE AM, 25 MG IN THE PM
     Dates: start: 200808
  2. COREG [Suspect]
     Active Substance: CARVEDILOL
     Indication: MITRAL VALVE REPAIR

REACTIONS (1)
  - Dizziness [Recovered/Resolved]
